FAERS Safety Report 22080309 (Version 3)
Quarter: 2023Q2

REPORT INFORMATION
  Report Type: Spontaneous
  Country: TW (occurrence: TW)
  Receive Date: 20230309
  Receipt Date: 20230418
  Transmission Date: 20230721
  Serious: Yes (Death)
  Sender: FDA-Public Use
  Company Number: TW-BAYER-2023A029253

PATIENT
  Age: 72 Year
  Sex: Male

DRUGS (4)
  1. XOFIGO [Suspect]
     Active Substance: RADIUM RA-223 DICHLORIDE
     Indication: Hormone-refractory prostate cancer
     Dosage: ONCE, FIRST INJECTION
     Dates: start: 20220816, end: 20220816
  2. XOFIGO [Suspect]
     Active Substance: RADIUM RA-223 DICHLORIDE
     Indication: Hormone-refractory prostate cancer
     Dosage: ONCE, SECOND INJECTION
     Dates: start: 2022, end: 2022
  3. XOFIGO [Suspect]
     Active Substance: RADIUM RA-223 DICHLORIDE
     Indication: Hormone-refractory prostate cancer
     Dosage: ONCE, THIRD INJECTION
     Dates: start: 2022, end: 2022
  4. XOFIGO [Suspect]
     Active Substance: RADIUM RA-223 DICHLORIDE
     Indication: Hormone-refractory prostate cancer
     Dosage: ONCE, FOURTH INJECTION
     Dates: start: 20221209, end: 20221209

REACTIONS (2)
  - Death [Fatal]
  - Fall [None]

NARRATIVE: CASE EVENT DATE: 20230101
